FAERS Safety Report 8582303-2 (Version None)
Quarter: 2012Q3

REPORT INFORMATION
  Report Type: 
  Country: None (occurrence: None)
  Receive Date: 20120809
  Receipt Date: 20120803
  Transmission Date: 20120928
  Serious: Yes (Death, Other)
  Sender: FDA-Public Use
  Company Number: PHHY2011US36274

PATIENT

DRUGS (1)
  1. NEORAL [Suspect]
     Indication: THROMBOTIC THROMBOCYTOPENIC PURPURA
     Route: 064

REACTIONS (3)
  - DEATH [None]
  - FOETAL EXPOSURE DURING PREGNANCY [None]
  - PREMATURE BABY [None]
